FAERS Safety Report 4803206-2 (Version None)
Quarter: 2005Q3

REPORT INFORMATION
  Report Type: 
  Country: None (occurrence: None)
  Receive Date: 20050929
  Receipt Date: 20050610
  Transmission Date: 20060218
  Serious: No
  Sender: FDA-Public Use
  Company Number: 05P-163-0302855-00

PATIENT
  Age: 67 Year
  Sex: Female
  Weight: 77.1115 kg

DRUGS (6)
  1. HUMIRA [Suspect]
     Indication: RHEUMATOID ARTHRITIS
     Dosage: 40 MG, 1 IN 2 WK, SUBCUTANEOUS
     Route: 058
     Dates: start: 20040601
  2. PREDNISONE [Concomitant]
  3. NEBUTONE [Concomitant]
  4. COMBIVENT [Concomitant]
  5. FLUTICASONE PROPIONATE [Concomitant]
  6. SALBUTAMOL [Concomitant]

REACTIONS (2)
  - BRONCHITIS [None]
  - DYSPNOEA [None]
